FAERS Safety Report 7060346-8 (Version None)
Quarter: 2010Q4

REPORT INFORMATION
  Report Type: 
  Country: None (occurrence: None)
  Receive Date: 20101025
  Receipt Date: 20101015
  Transmission Date: 20110411
  Serious: Yes (Hospitalization)
  Sender: FDA-Public Use
  Company Number: B0674913A

PATIENT
  Age: 40 Year
  Sex: Female

DRUGS (14)
  1. MARAVIROC [Suspect]
     Indication: HIV INFECTION
     Dosage: 150MG TWICE PER DAY
     Route: 048
     Dates: start: 20081010
  2. DARUNAVIR [Concomitant]
     Indication: HIV INFECTION
     Route: 048
     Dates: start: 20080728
  3. RALTEGRAVIR [Concomitant]
     Indication: HIV INFECTION
     Route: 048
     Dates: start: 20080728
  4. RITONAVIR [Concomitant]
     Indication: HIV INFECTION
     Route: 048
     Dates: start: 20040512
  5. VALACYCLOVIR [Concomitant]
     Indication: ANTIVIRAL TREATMENT
     Route: 048
     Dates: start: 20060606
  6. SYMBICORT [Concomitant]
     Indication: ASTHMA
     Route: 055
     Dates: start: 20091113
  7. RISPERIDONE [Concomitant]
     Route: 048
     Dates: start: 20091107
  8. BUPROPION [Concomitant]
     Indication: DEPRESSION
     Route: 048
     Dates: start: 20090908
  9. IBUPROFEN [Concomitant]
     Indication: PAIN
     Route: 048
     Dates: start: 20090908
  10. ATORVASTATIN [Concomitant]
     Route: 048
     Dates: start: 20090511
  11. NIACIN [Concomitant]
     Route: 048
     Dates: start: 20081010
  12. MULTI-VITAMINS [Concomitant]
     Route: 048
     Dates: start: 20080313
  13. OMEPRAZOLE [Concomitant]
     Route: 048
     Dates: start: 20040612
  14. ALBUTEROL [Concomitant]
     Indication: ASTHMA
     Route: 055
     Dates: start: 20030716

REACTIONS (1)
  - CERVIX CARCINOMA [None]
